FAERS Safety Report 9266836 (Version 1)
Quarter: 2013Q2

REPORT INFORMATION
  Report Type: Report from Study
  Country: MX (occurrence: MX)
  Receive Date: 20130502
  Receipt Date: 20130502
  Transmission Date: 20140414
  Serious: Yes (Hospitalization, Disabling)
  Sender: FDA-Public Use
  Company Number: MX-SANOFI-AVENTIS-2013SA042776

PATIENT
  Age: 88 Year
  Sex: Female
  Weight: 50 kg

DRUGS (7)
  1. GLIMEPIRIDE [Suspect]
     Indication: TYPE 2 DIABETES MELLITUS
     Route: 048
     Dates: start: 2005
  2. FABROVEN [Concomitant]
     Indication: PULMONARY VASCULAR DISORDER
     Route: 048
  3. FABROVEN [Concomitant]
     Indication: VARICOSE VEIN
     Route: 048
  4. PLAVIX [Concomitant]
     Indication: PULMONARY VASCULAR DISORDER
     Route: 048
     Dates: start: 2010
  5. PLAVIX [Concomitant]
     Indication: VARICOSE VEIN
     Route: 048
     Dates: start: 2010
  6. PROPAFENONE [Concomitant]
     Route: 048
  7. NOOTROPIL [Concomitant]
     Route: 048

REACTIONS (4)
  - Lower limb fracture [Recovered/Resolved with Sequelae]
  - Fall [Unknown]
  - Gait disturbance [Unknown]
  - Wrong technique in drug usage process [Unknown]
